FAERS Safety Report 9135525 (Version 2)
Quarter: 2014Q1

REPORT INFORMATION
  Report Type: Spontaneous
  Country: US (occurrence: US)
  Receive Date: 20130219
  Receipt Date: 20140213
  Transmission Date: 20141002
  Serious: No
  Sender: FDA-Public Use
  Company Number: US-BRISTOL-MYERS SQUIBB COMPANY-16763419

PATIENT
  Age: 70 Year
  Sex: Female
  Weight: 77 kg

DRUGS (3)
  1. ORENCIA [Suspect]
     Indication: PSORIATIC ARTHROPATHY
     Dosage: LAST INF:07AUG2012?LOT#2C80090,EXP:10JUL12,2O73074,7AUG12, 2D72776,24JUL12
     Route: 042
     Dates: start: 20120710, end: 20120904
  2. METHOTREXATE [Concomitant]
  3. LISINOPRIL [Concomitant]

REACTIONS (6)
  - Headache [Not Recovered/Not Resolved]
  - Nausea [Recovered/Resolved]
  - Back pain [Unknown]
  - Dysuria [Unknown]
  - Decreased appetite [Recovered/Resolved]
  - Drug dose omission [Unknown]
